FAERS Safety Report 4976965-6 (Version None)
Quarter: 2006Q2

REPORT INFORMATION
  Report Type: 
  Country: None (occurrence: None)
  Receive Date: 20060413
  Receipt Date: 20060406
  Transmission Date: 20061013
  Serious: Yes (Death, Life-Threatening)
  Sender: FDA-Public Use
  Company Number: 231918K06USA

PATIENT
  Age: 41 Year
  Sex: Female

DRUGS (2)
  1. REBIF [Suspect]
     Indication: MULTIPLE SCLEROSIS
     Dosage: 44 MCG, 3 IN 1  WEEKS, SUBCUTANEOUS
     Route: 058
     Dates: start: 20021225
  2. DECADRON [Suspect]
     Dosage: 1 MG, 1 IN 2 DAYS,
     Dates: start: 19860101

REACTIONS (8)
  - CARDIAC ARREST [None]
  - CIRCULATORY COLLAPSE [None]
  - DEPRESSED LEVEL OF CONSCIOUSNESS [None]
  - INTESTINAL ISCHAEMIA [None]
  - INTESTINAL OBSTRUCTION [None]
  - PAIN [None]
  - SEPSIS [None]
  - WOUND INFECTION PSEUDOMONAS [None]
